FAERS Safety Report 6942848-5 (Version None)
Quarter: 2010Q3

REPORT INFORMATION
  Report Type: 
  Country: None (occurrence: None)
  Receive Date: 20100826
  Receipt Date: 20100812
  Transmission Date: 20110219
  Serious: Yes (Hospitalization)
  Sender: FDA-Public Use
  Company Number: ES-ELI_LILLY_AND_COMPANY-ES201008003967

PATIENT
  Age: 50 Year
  Sex: Female

DRUGS (5)
  1. ZYPREXA [Suspect]
     Indication: BIPOLAR DISORDER
     Dosage: 5 MG, 3/D
     Route: 048
     Dates: end: 20100420
  2. DEPAKENE [Concomitant]
     Indication: BIPOLAR DISORDER
     Dosage: 500 MG, 2/D
     Route: 048
     Dates: start: 20080701, end: 20100420
  3. LORAMET [Concomitant]
     Indication: INSOMNIA
     Dosage: 2 MG, DAILY (1/D)
     Route: 048
  4. PLANTABEN [Concomitant]
     Indication: CONSTIPATION
     Dosage: 3.5 G, 3/D
     Route: 048
  5. VALIUM [Concomitant]
     Dosage: 5 MG, 3/D
     Route: 048

REACTIONS (6)
  - ABDOMINAL PAIN UPPER [None]
  - HEPATIC STEATOSIS [None]
  - LIVER DISORDER [None]
  - NAUSEA [None]
  - PANCREATIC DISORDER [None]
  - VOMITING [None]
